FAERS Safety Report 11242494 (Version 4)
Quarter: 2015Q4

REPORT INFORMATION
  Report Type: Report from Study
  Country: US (occurrence: US)
  Receive Date: 20150707
  Receipt Date: 20151208
  Transmission Date: 20160304
  Serious: Yes (Hospitalization, Other)
  Sender: FDA-Public Use
  Company Number: US-GILEAD-2015-0156719

PATIENT
  Age: 46 Year
  Sex: Female
  Weight: 68.27 kg

DRUGS (23)
  1. REMODULIN [Suspect]
     Active Substance: TREPROSTINIL
     Indication: PULMONARY HYPERTENSION
     Dosage: 0.022 UG/KG, UNK
     Route: 042
     Dates: start: 20131211
  2. CETIRIZINE HYDROCHLORIDE. [Concomitant]
     Active Substance: CETIRIZINE HYDROCHLORIDE
     Indication: PRODUCT USED FOR UNKNOWN INDICATION
  3. OMEPRAZOLE. [Concomitant]
     Active Substance: OMEPRAZOLE
  4. LEVOTHYROXINE. [Concomitant]
     Active Substance: LEVOTHYROXINE
  5. IRON [Concomitant]
     Active Substance: IRON
  6. DIGOXIN. [Concomitant]
     Active Substance: DIGOXIN
  7. REVATIO [Suspect]
     Active Substance: SILDENAFIL CITRATE
     Indication: PULMONARY HYPERTENSION
     Dosage: 60 MG, TID
     Route: 048
     Dates: start: 201010
  8. TORASEMIDE [Concomitant]
     Active Substance: TORSEMIDE
     Indication: PRODUCT USED FOR UNKNOWN INDICATION
  9. VITAMIN C [Concomitant]
     Active Substance: ASCORBIC ACID
  10. ONDANSETRON [Concomitant]
     Active Substance: ONDANSETRON
     Indication: PRODUCT USED FOR UNKNOWN INDICATION
  11. BENADRYL [Concomitant]
     Active Substance: DIPHENHYDRAMINE HYDROCHLORIDE
  12. AMITRIPTYLINE [Concomitant]
     Active Substance: AMITRIPTYLINE
  13. ZYRTEC [Concomitant]
     Active Substance: CETIRIZINE HYDROCHLORIDE
  14. DOCUSATE SODIUM. [Concomitant]
     Active Substance: DOCUSATE SODIUM
  15. CELEBREX [Concomitant]
     Active Substance: CELECOXIB
  16. DEMADEX [Concomitant]
     Active Substance: TORSEMIDE
  17. AMBRISENTAN [Suspect]
     Active Substance: AMBRISENTAN
     Indication: PULMONARY HYPERTENSION
     Dosage: 5MG, UKN
     Route: 065
     Dates: start: 20110209
  18. XARELTO [Concomitant]
     Active Substance: RIVAROXABAN
  19. SIMVASTATIN. [Concomitant]
     Active Substance: SIMVASTATIN
  20. SPIRONOLACTONE. [Concomitant]
     Active Substance: SPIRONOLACTONE
     Indication: PRODUCT USED FOR UNKNOWN INDICATION
  21. ROPINIROLE. [Concomitant]
     Active Substance: ROPINIROLE
  22. AMBRISENTAN [Suspect]
     Active Substance: AMBRISENTAN
     Dosage: 10 MG, QD
     Route: 065
     Dates: start: 20110208
  23. POTASSIUM [Concomitant]
     Active Substance: POTASSIUM

REACTIONS (5)
  - Pain [Unknown]
  - Unevaluable event [Unknown]
  - Infusion site rash [Unknown]
  - Pulmonary arterial hypertension [Unknown]
  - Burning sensation [Unknown]

NARRATIVE: CASE EVENT DATE: 20150601
